FAERS Safety Report 6237346-0 (Version None)
Quarter: 2009Q2

REPORT INFORMATION
  Report Type: 
  Country: None (occurrence: None)
  Receive Date: 20090619
  Receipt Date: 20090617
  Transmission Date: 20091009
  Serious: Yes (Life-Threatening, Hospitalization, Other)
  Sender: FDA-Public Use
  Company Number: PHHY2009JP18710

PATIENT
  Age: 81 Year
  Sex: Female

DRUGS (5)
  1. GLEEVEC [Suspect]
     Indication: CHRONIC MYELOID LEUKAEMIA
     Dosage: 300 MG DAILY
     Route: 048
     Dates: start: 20090213, end: 20090225
  2. GLEEVEC [Suspect]
     Dosage: 400MG DAILY
     Route: 048
     Dates: start: 20090226, end: 20090313
  3. ALDACTONE [Concomitant]
     Route: 048
  4. LENDORMIN [Concomitant]
     Route: 048
  5. LASIX [Concomitant]
     Route: 048

REACTIONS (6)
  - ABDOMINAL PAIN [None]
  - GASTROINTESTINAL DISORDER [None]
  - GASTROINTESTINAL PERFORATION [None]
  - HEPATIC CIRRHOSIS [None]
  - INFLAMMATION [None]
  - SURGERY [None]
